FAERS Safety Report 24349485 (Version 1)
Quarter: 2024Q3

REPORT INFORMATION
  Report Type: Spontaneous
  Country: CN (occurrence: CN)
  Receive Date: 20240923
  Receipt Date: 20240923
  Transmission Date: 20241016
  Serious: Yes (Hospitalization, Other)
  Sender: TAKEDA
  Company Number: CN-JNJFOC-20240953458

PATIENT
  Age: 62 Year
  Sex: Female
  Weight: 80 kg

DRUGS (6)
  1. VELCADE [Suspect]
     Active Substance: BORTEZOMIB
     Indication: Plasma cell myeloma
     Dosage: 1.3 MILLIGRAM/SQ. METER
     Route: 058
     Dates: start: 20240221
  2. DEXAMETHASONE [Suspect]
     Active Substance: DEXAMETHASONE
     Indication: Plasma cell myeloma
     Dosage: 20 MILLIGRAM
     Route: 048
  3. DARATUMUMAB [Suspect]
     Active Substance: DARATUMUMAB
     Indication: Plasma cell myeloma
     Dosage: 1800 MILLIGRAM
     Route: 058
  4. ACYCLOVIR [Concomitant]
     Active Substance: ACYCLOVIR
     Indication: Infection prophylaxis
     Dosage: 0.2 GRAM, BID
     Route: 048
     Dates: start: 20240221
  5. Compound glycyrrhizin [Concomitant]
     Indication: Alanine aminotransferase increased
     Dosage: UNK, TID
     Route: 048
     Dates: start: 20240509
  6. Di yu sheng bai [Concomitant]
     Indication: Prophylaxis
     Dosage: UNK, TID
     Route: 048
     Dates: start: 20240131

REACTIONS (1)
  - Interstitial lung disease [Recovering/Resolving]

NARRATIVE: CASE EVENT DATE: 20240903
